FAERS Safety Report 6751465-1 (Version None)
Quarter: 2010Q2

REPORT INFORMATION
  Report Type: 
  Country: None (occurrence: None)
  Receive Date: 20100602
  Receipt Date: 20100525
  Transmission Date: 20101027
  Serious: Yes (Other)
  Sender: FDA-Public Use
  Company Number: US-ROCHE-693683

PATIENT
  Sex: Female
  Weight: 64.4 kg

DRUGS (7)
  1. AVASTIN [Suspect]
     Indication: OVARIAN CANCER
     Route: 042
     Dates: start: 20090101, end: 20090101
  2. AVASTIN [Suspect]
     Dosage: FREQUENCY REPORTED AS 3 WEEKS ON, 1 WEEK OFF
     Route: 042
     Dates: start: 20090108, end: 20090611
  3. TAXOTERE [Suspect]
     Dosage: RECEIVED THERAPY 36 MONTHS AGO
     Route: 041
  4. TAXOTERE [Suspect]
     Dosage: RECEIVED 6 CYCLES STARTING 8 MONTHS AGO.
     Route: 041
  5. TAXOTERE [Suspect]
     Route: 041
     Dates: start: 20090108, end: 20090611
  6. TAXOL [Concomitant]
  7. CARBOPLATIN [Concomitant]

REACTIONS (7)
  - DACRYOSTENOSIS ACQUIRED [None]
  - DECREASED APPETITE [None]
  - EPISTAXIS [None]
  - LACRIMATION INCREASED [None]
  - NAUSEA [None]
  - RECTAL HAEMORRHAGE [None]
  - VOMITING [None]
